FAERS Safety Report 8559247-5 (Version None)
Quarter: 2012Q3

REPORT INFORMATION
  Report Type: 
  Country: None (occurrence: None)
  Receive Date: 20120720
  Receipt Date: 20120709
  Transmission Date: 20120928
  Serious: Yes (Other)
  Sender: FDA-Public Use
  Company Number: 2012S1000790

PATIENT
  Age: 51 Year
  Sex: Male

DRUGS (13)
  1. TOPIRAMATE [Concomitant]
  2. TRAZODONE HYDROCHLORIDE [Concomitant]
  3. FORMOTEROL FUMARATE [Concomitant]
  4. FUROSEMIDE [Concomitant]
  5. MONTELUKAST SODIUM [Concomitant]
  6. MEXAZOLAM [Concomitant]
  7. ALISKIREN [Concomitant]
  8. BUDESONIDE [Concomitant]
  9. HYDROCHLOROTHIAZDE TAB [Concomitant]
  10. LIVAZO (PITAVASTATIN) [Suspect]
     Indication: DYSLIPIDAEMIA
     Dosage: 2 MG;1X;PO
     Route: 048
     Dates: start: 20120101, end: 20120601
  11. HEMIFUMARATE [Concomitant]
  12. ESOMEPRAZOLE MAGNESIUM [Concomitant]
  13. LOSARTAN POTASSIUM [Concomitant]

REACTIONS (1)
  - DYSPNOEA [None]
